FAERS Safety Report 5786409-2 (Version None)
Quarter: 2008Q2

REPORT INFORMATION
  Report Type: 
  Country: None (occurrence: None)
  Receive Date: 20080624
  Receipt Date: 20080612
  Transmission Date: 20081010
  Serious: Yes (Other)
  Sender: FDA-Public Use
  Company Number: IE-PFIZER INC-2008036560

PATIENT
  Sex: Male
  Weight: 70 kg

DRUGS (3)
  1. CHANTIX [Suspect]
     Indication: SMOKING CESSATION THERAPY
     Route: 048
     Dates: start: 20070101, end: 20071101
  2. PRAVASTATIN [Concomitant]
     Route: 048
  3. NICOTINE [Concomitant]

REACTIONS (6)
  - AURICULAR SWELLING [None]
  - DEPRESSION [None]
  - EMOTIONAL DISORDER [None]
  - EYE SWELLING [None]
  - RASH [None]
  - SMOKER [None]
